FAERS Safety Report 18844568 (Version 1)
Quarter: 2021Q1

REPORT INFORMATION
  Report Type: Report from Study
  Country: PE (occurrence: PE)
  Receive Date: 20210203
  Receipt Date: 20210203
  Transmission Date: 20210419
  Serious: Yes (Other)
  Sender: FDA-Public Use
  Company Number: PE-JNJFOC-20201124991

PATIENT
  Age: 41 Year
  Sex: Female

DRUGS (1)
  1. SIMPONI [Suspect]
     Active Substance: GOLIMUMAB
     Indication: ANKYLOSING SPONDYLITIS
     Route: 058
     Dates: start: 20181120

REACTIONS (4)
  - Extrapulmonary tuberculosis [Not Recovered/Not Resolved]
  - Breast operation [Not Recovered/Not Resolved]
  - Road traffic accident [Not Recovered/Not Resolved]
  - Rib fracture [Not Recovered/Not Resolved]

NARRATIVE: CASE EVENT DATE: 202011
